FAERS Safety Report 6568960-0 (Version None)
Quarter: 2010Q1

REPORT INFORMATION
  Report Type: 
  Country: None (occurrence: None)
  Receive Date: 20100128
  Receipt Date: 20100115
  Transmission Date: 20100710
  Serious: Yes (Death, Other)
  Sender: FDA-Public Use
  Company Number: 2008AL001609

PATIENT
  Age: 70 Year
  Sex: Female

DRUGS (6)
  1. DICLOFENAC SODIUM [Suspect]
     Indication: ANALGESIC THERAPY
     Dosage: 50 MG; PO
     Route: 048
     Dates: start: 20080115, end: 20080120
  2. GLICLAZIDE [Concomitant]
  3. METFORMIN [Concomitant]
  4. PARACETAMOL [Concomitant]
  5. RANITIDINE [Concomitant]
  6. SIMVASTATIN [Concomitant]

REACTIONS (2)
  - URINARY RETENTION [None]
  - URINE OUTPUT DECREASED [None]
